FAERS Safety Report 7260319-6 (Version None)
Quarter: 2011Q1

REPORT INFORMATION
  Report Type: 
  Country: None (occurrence: None)
  Receive Date: 20110130
  Receipt Date: 20101018
  Transmission Date: 20110831
  Serious: No
  Sender: FDA-Public Use
  Company Number: US-ABBOTT-10P-163-0679521-00

PATIENT
  Sex: Female
  Weight: 43.13 kg

DRUGS (10)
  1. HYDROCORTISONE ACE [Concomitant]
     Indication: RECTAL POLYP
  2. CLARITIN [Concomitant]
     Indication: SEASONAL ALLERGY
  3. FOLIC ACID [Concomitant]
     Indication: PRODUCT USED FOR UNKNOWN INDICATION
  4. MULTI-VITAMIN [Concomitant]
     Indication: PRODUCT USED FOR UNKNOWN INDICATION
  5. UNKNOWN INHALER [Concomitant]
     Indication: SEASONAL ALLERGY
  6. HUMIRA [Suspect]
     Indication: CROHN'S DISEASE
     Dosage: RESTARTED WITH PAP PROGRAM.
     Route: 058
     Dates: start: 20100209, end: 20100915
  7. HUMIRA [Suspect]
     Dosage: DID NOT HAVE INSURANCE, SO HAD TO STOP MEDICATION FOR SIX MONTHS.
     Route: 058
  8. PROCTOSOL HC [Concomitant]
     Indication: RECTAL POLYP
     Route: 061
  9. SINGULAIR [Concomitant]
     Indication: SEASONAL ALLERGY
  10. ALLEGRA [Concomitant]
     Indication: SEASONAL ALLERGY

REACTIONS (6)
  - NAUSEA [None]
  - RECTAL POLYP [None]
  - DRUG DOSE OMISSION [None]
  - ABDOMINAL DISCOMFORT [None]
  - ABDOMINAL PAIN UPPER [None]
  - ARTHRALGIA [None]
